FAERS Safety Report 8737357 (Version 3)
Quarter: 2012Q4

REPORT INFORMATION
  Report Type: 
  Country: JP (occurrence: JP)
  Receive Date: 20120822
  Receipt Date: 20120919
  Transmission Date: 20130627
  Serious: Yes (Other)
  Sender: FDA-Public Use
  Company Number: JP-BAYER-2012-084936

PATIENT
  Age: 40 Year
  Sex: Female
  Weight: 42 kg

DRUGS (2)
  1. BETAFERON [Suspect]
     Indication: MULTIPLE SCLEROSIS RELAPSE PROPHYLAXIS
     Dosage: Daily dose 2 miu
     Route: 058
     Dates: start: 20120814, end: 20120816
  2. BRUFEN [Concomitant]
     Dosage: UNK
     Route: 048
     Dates: start: 20120814, end: 20120816

REACTIONS (4)
  - Cystoid macular oedema [Recovering/Resolving]
  - Metamorphopsia [Recovering/Resolving]
  - Conjunctival hyperaemia [Recovering/Resolving]
  - Visual acuity reduced [None]
